FAERS Safety Report 14448190 (Version 1)
Quarter: 2018Q1

REPORT INFORMATION
  Report Type: Spontaneous
  Country: JP (occurrence: JP)
  Receive Date: 20180126
  Receipt Date: 20180126
  Transmission Date: 20180509
  Serious: Yes (Death)
  Sender: FDA-Public Use
  Company Number: JP-MITSUBISHI TANABE PHARMA CORPORATION-MTPC2018-0000820

PATIENT
  Age: 81 Year
  Sex: Male

DRUGS (2)
  1. RILUTEK [Concomitant]
     Active Substance: RILUZOLE
     Route: 048
  2. RADICUT [Suspect]
     Active Substance: EDARAVONE
     Route: 051
     Dates: start: 20151012, end: 20171215

REACTIONS (1)
  - Respiratory failure [Fatal]

NARRATIVE: CASE EVENT DATE: 2018
